FAERS Safety Report 4813983-2 (Version None)
Quarter: 2005Q4

REPORT INFORMATION
  Report Type: 
  Country: None (occurrence: None)
  Receive Date: 20051028
  Receipt Date: 20040110
  Transmission Date: 20060501
  Serious: No
  Sender: FDA-Public Use
  Company Number: US-GLAXOSMITHKLINE-A0538835A

PATIENT

DRUGS (5)
  1. SEREVENT [Suspect]
     Indication: ASTHMA
     Dosage: 1PUFF TWICE PER DAY
     Route: 055
     Dates: start: 20031201
  2. FLOVENT [Concomitant]
  3. FLONASE [Concomitant]
  4. ALBUTEROL [Concomitant]
  5. ALLEGRA [Concomitant]

REACTIONS (1)
  - ARRHYTHMIA [None]
